FAERS Safety Report 7898387-0 (Version None)
Quarter: 2011Q4

REPORT INFORMATION
  Report Type: 
  Country: None (occurrence: None)
  Receive Date: 20111107
  Receipt Date: 20111028
  Transmission Date: 20120403
  Serious: Yes (Other)
  Sender: FDA-Public Use
  Company Number: US-ASTRAZENECA-2011SE13888

PATIENT
  Age: 63 Year
  Sex: Female

DRUGS (1)
  1. ZOMIG [Suspect]
     Route: 048

REACTIONS (7)
  - VOMITING [None]
  - DRUG DOSE OMISSION [None]
  - BRONCHITIS [None]
  - HEADACHE [None]
  - FALL [None]
  - ILL-DEFINED DISORDER [None]
  - SUICIDAL IDEATION [None]
